FAERS Safety Report 7690107-8 (Version None)
Quarter: 2011Q3

REPORT INFORMATION
  Report Type: 
  Country: None (occurrence: None)
  Receive Date: 20110818
  Receipt Date: 20110808
  Transmission Date: 20111222
  Serious: Yes (Hospitalization, Other)
  Sender: FDA-Public Use
  Company Number: US-ELI_LILLY_AND_COMPANY-US201011006057

PATIENT
  Sex: Male

DRUGS (3)
  1. ANTIHYPERTENSIVES [Concomitant]
  2. FORTEO [Suspect]
     Dosage: 20 UG, QD
     Route: 065
  3. FORTEO [Suspect]
     Indication: OSTEOPOROSIS
     Dosage: 20 UG, DAILY (1/D)

REACTIONS (13)
  - DYSPHAGIA [None]
  - CHROMATURIA [None]
  - BALANCE DISORDER [None]
  - MOVEMENT DISORDER [None]
  - PNEUMONIA [None]
  - DYSPNOEA [None]
  - PNEUMONIA ASPIRATION [None]
  - DEHYDRATION [None]
  - DECREASED APPETITE [None]
  - CARDIAC FAILURE [None]
  - HEART RATE DECREASED [None]
  - HEART RATE INCREASED [None]
  - MALAISE [None]
